FAERS Safety Report 6977014-0 (Version None)
Quarter: 2010Q3

REPORT INFORMATION
  Report Type: 
  Country: None (occurrence: None)
  Receive Date: 20100910
  Receipt Date: 20100908
  Transmission Date: 20110219
  Serious: Yes (Death)
  Sender: FDA-Public Use
  Company Number: CO-ROCHE-724883

PATIENT
  Sex: Male

DRUGS (1)
  1. CELLCEPT [Suspect]
     Dosage: FREQUENCY: QD.
     Route: 048
     Dates: start: 20090422, end: 20100718

REACTIONS (1)
  - CARDIO-RESPIRATORY ARREST [None]
